FAERS Safety Report 16198618 (Version 2)
Quarter: 2019Q2

REPORT INFORMATION
  Report Type: Report from Study
  Country: US (occurrence: US)
  Receive Date: 20190415
  Receipt Date: 20190510
  Transmission Date: 20190711
  Serious: Yes (Hospitalization)
  Sender: FDA-Public Use
  Company Number: US-EXELIXIS-CABO-19020197

PATIENT
  Age: 65 Year
  Sex: Male

DRUGS (3)
  1. LYRICA [Concomitant]
     Active Substance: PREGABALIN
     Dosage: UNK
  2. CABOMETYX [Suspect]
     Active Substance: CABOZANTINIB S-MALATE
     Indication: RENAL CANCER
     Dosage: 60 MG, QD
     Route: 048
     Dates: start: 20181025, end: 20190114
  3. CABOMETYX [Suspect]
     Active Substance: CABOZANTINIB S-MALATE
     Dosage: 40 MG, QD
     Route: 048
     Dates: start: 201904

REACTIONS (4)
  - Lung hernia [Unknown]
  - Dry mouth [Unknown]
  - Stomatitis [Unknown]
  - Dysphonia [Unknown]

NARRATIVE: CASE EVENT DATE: 201901
